FAERS Safety Report 7982469-9 (Version None)
Quarter: 2011Q4

REPORT INFORMATION
  Report Type: 
  Country: None (occurrence: None)
  Receive Date: 20111215
  Receipt Date: 20111212
  Transmission Date: 20120403
  Serious: Yes (Death, Other)
  Sender: FDA-Public Use
  Company Number: PHHY2011NL102133

PATIENT
  Sex: Male
  Weight: 78.5 kg

DRUGS (3)
  1. ZOMETA [Suspect]
     Indication: LUNG CANCER METASTATIC
     Dosage: 4 MG/ 5 ML ONCE PER 28 DAYS
     Dates: start: 20110926
  2. ZOMETA [Suspect]
     Dosage: 4 MG/ 5 ML ONCE PER 28 DAYS
     Dates: start: 20111027
  3. TEMAZEPAM [Suspect]
     Dosage: 10 MG, UNK

REACTIONS (4)
  - NEOPLASM MALIGNANT [None]
  - DEATH [None]
  - NEOPLASM PROGRESSION [None]
  - TERMINAL STATE [None]
